FAERS Safety Report 9772776 (Version 1)
Quarter: 2013Q4

REPORT INFORMATION
  Report Type: Other
  Country: JP (occurrence: JP)
  Receive Date: 20131219
  Receipt Date: 20131219
  Transmission Date: 20140711
  Serious: Yes (Hospitalization)
  Sender: FDA-Public Use
  Company Number: JP-BRISTOL-MYERS SQUIBB COMPANY-19908995

PATIENT
  Age: 62 Year
  Sex: Male

DRUGS (2)
  1. PACLITAXEL [Suspect]
     Indication: LUNG ADENOCARCINOMA
  2. CARBOPLATIN [Suspect]
     Indication: LUNG ADENOCARCINOMA
     Dosage: 1DF: AUC 6

REACTIONS (2)
  - Infectious pleural effusion [Recovering/Resolving]
  - Pneumothorax [Recovering/Resolving]
